FAERS Safety Report 7865725-4 (Version None)
Quarter: 2011Q4

REPORT INFORMATION
  Report Type: 
  Country: None (occurrence: None)
  Receive Date: 20111028
  Receipt Date: 20110208
  Transmission Date: 20120403
  Serious: No
  Sender: FDA-Public Use
  Company Number: US-GLAXOSMITHKLINE-A0913606A

PATIENT
  Age: 76 Year
  Sex: Female

DRUGS (10)
  1. GLUCOSAMINE SULFATE [Concomitant]
  2. COMBIVENT [Concomitant]
  3. ADVAIR DISKUS 100/50 [Suspect]
     Indication: CHRONIC OBSTRUCTIVE PULMONARY DISEASE
     Dosage: 1PUFF PER DAY
     Route: 055
     Dates: start: 20060201
  4. PRILOSEC [Concomitant]
  5. FISH OIL [Concomitant]
  6. VITAMIN D [Concomitant]
  7. CALCIUM CARBONATE [Concomitant]
  8. NYSTATIN [Concomitant]
  9. AMBIEN [Concomitant]
  10. MULTI-VITAMIN [Concomitant]

REACTIONS (1)
  - CANDIDIASIS [None]
